FAERS Safety Report 10364078 (Version 1)
Quarter: 2014Q3

REPORT INFORMATION
  Report Type: Spontaneous
  Country: US (occurrence: US)
  Receive Date: 20140806
  Receipt Date: 20140806
  Transmission Date: 20150326
  Serious: Yes (Hospitalization, Other)
  Sender: FDA-Public Use
  Company Number: PHHY2014US093372

PATIENT
  Sex: Male

DRUGS (4)
  1. SOTALOL. [Suspect]
     Active Substance: SOTALOL
     Route: 064
  2. FLUORIN [Suspect]
     Active Substance: SODIUM FLUORIDE
     Route: 064
  3. DIGOXIN. [Suspect]
     Active Substance: DIGOXIN
     Route: 064
  4. DEXAMETHASONE. [Suspect]
     Active Substance: DEXAMETHASONE
     Dosage: 4 MG DAILY, UNK
     Route: 064

REACTIONS (16)
  - Pericardial effusion [Recovered/Resolved]
  - Tachycardia foetal [Recovered/Resolved]
  - Foetal exposure during delivery [Unknown]
  - Bradycardia foetal [Recovered/Resolved]
  - Arrhythmia supraventricular [Recovered/Resolved]
  - Supraventricular extrasystoles [Recovered/Resolved]
  - Conduction disorder [Recovered/Resolved]
  - Atrioventricular block [Recovered/Resolved]
  - Atrial flutter [Recovered/Resolved]
  - Foetal arrhythmia [Recovered/Resolved]
  - Foetal growth restriction [Recovered/Resolved]
  - Ventricular hypertrophy [Recovered/Resolved]
  - Ventricular septal defect [Not Recovered/Not Resolved]
  - Sinus rhythm [Recovered/Resolved]
  - Premature baby [Unknown]
  - Caudal regression syndrome [Recovered/Resolved]
